FAERS Safety Report 6549582-4 (Version None)
Quarter: 2010Q1

REPORT INFORMATION
  Report Type: 
  Country: None (occurrence: None)
  Receive Date: 20100125
  Receipt Date: 20100115
  Transmission Date: 20100710
  Serious: Yes (Other)
  Sender: FDA-Public Use
  Company Number: US-AMGEN-QUU385940

PATIENT
  Sex: Female

DRUGS (7)
  1. NEUPOGEN [Suspect]
     Indication: CHEMOTHERAPY
     Route: 058
     Dates: start: 20100110
  2. ETOPOSIDE [Concomitant]
  3. PREDNISONE [Concomitant]
  4. VINCRISTINE [Concomitant]
  5. CYCLOPHOSPHAMIDE [Concomitant]
  6. DOXORUBICIN HCL [Concomitant]
  7. BACTRIM [Concomitant]
     Dates: start: 20100110

REACTIONS (1)
  - SWOLLEN TONGUE [None]
